FAERS Safety Report 11660881 (Version 5)
Quarter: 2016Q4

REPORT INFORMATION
  Report Type: Report from Study
  Country: ES (occurrence: ES)
  Receive Date: 20151026
  Receipt Date: 20161121
  Transmission Date: 20170206
  Serious: Yes (Life-Threatening, Hospitalization, Other)
  Sender: FDA-Public Use
  Company Number: ES-GILEAD-2015-0170180

PATIENT
  Age: 69 Year
  Sex: Male
  Weight: 84.4 kg

DRUGS (32)
  1. RITUXIMAB [Suspect]
     Active Substance: RITUXIMAB
     Dosage: 787 MG, Q1WK
     Route: 042
     Dates: start: 20150324, end: 20150324
  2. RITUXIMAB [Suspect]
     Active Substance: RITUXIMAB
     Dosage: 787 MG, Q1WK
     Route: 042
     Dates: start: 20150414, end: 20150414
  3. OLMESARTAN [Concomitant]
     Active Substance: OLMESARTAN
     Dosage: UNK
     Route: 048
     Dates: start: 2014
  4. IDELALISIB [Suspect]
     Active Substance: IDELALISIB
     Dosage: 100 MG, BID
     Route: 048
     Dates: start: 20150916, end: 20150916
  5. IDELALISIB [Suspect]
     Active Substance: IDELALISIB
     Dosage: 100 MG, BID
     Route: 048
     Dates: start: 20151019, end: 20151019
  6. ALOPURINOL [Concomitant]
     Active Substance: ALLOPURINOL
     Indication: HYPERURICAEMIA
     Route: 048
     Dates: start: 20150627
  7. PARACETAMOL [Concomitant]
     Active Substance: ACETAMINOPHEN
     Indication: BONE PAIN
     Dosage: UNK
     Route: 048
  8. IDELALISIB [Suspect]
     Active Substance: IDELALISIB
     Dosage: 150 MG, BID
     Route: 048
     Dates: start: 20150701, end: 20150826
  9. RITUXIMAB [Suspect]
     Active Substance: RITUXIMAB
     Indication: CHRONIC LYMPHOCYTIC LEUKAEMIA
     Dosage: 787 MG, Q1WK
     Route: 042
     Dates: start: 20150505, end: 20150505
  10. RITUXIMAB [Suspect]
     Active Substance: RITUXIMAB
     Dosage: 787 MG, Q1WK
     Route: 042
     Dates: start: 20150317, end: 20150318
  11. RITUXIMAB [Suspect]
     Active Substance: RITUXIMAB
     Dosage: 787 MG, Q1WK
     Route: 042
     Dates: start: 20150331, end: 20150331
  12. INSULIN GLARGINE [Concomitant]
     Active Substance: INSULIN GLARGINE
     Indication: TYPE 2 DIABETES MELLITUS
     Route: 058
     Dates: start: 20150319
  13. INSULIN ASPART [Concomitant]
     Active Substance: INSULIN ASPART
     Indication: TYPE 2 DIABETES MELLITUS
     Route: 058
     Dates: start: 20150410
  14. ACENOCUMAROL [Concomitant]
     Active Substance: ACENOCOUMAROL
     Indication: AORTIC VALVE REPLACEMENT
     Dosage: UNK
     Route: 048
  15. FUROSEMIDE. [Concomitant]
     Active Substance: FUROSEMIDE
     Dosage: UNK
     Route: 042
     Dates: start: 20150903, end: 201509
  16. IDELALISIB [Suspect]
     Active Substance: IDELALISIB
     Indication: CHRONIC LYMPHOCYTIC LEUKAEMIA
     Dosage: 150 MG, BID
     Route: 048
     Dates: start: 20150317, end: 20150529
  17. RITUXIMAB [Suspect]
     Active Substance: RITUXIMAB
     Dosage: 787 MG, Q1WK
     Route: 042
     Dates: start: 20150421, end: 20150421
  18. OMEPRAZOLE. [Concomitant]
     Active Substance: OMEPRAZOLE
     Dosage: UNK
     Route: 048
     Dates: start: 2011
  19. OLMESARTAN [Concomitant]
     Active Substance: OLMESARTAN
     Indication: HYPERTENSION
     Dosage: UNK
     Route: 048
  20. PARACETAMOL [Concomitant]
     Active Substance: ACETAMINOPHEN
     Dosage: UNK
     Route: 048
     Dates: start: 201408
  21. DOXAZOSIN [Concomitant]
     Active Substance: DOXAZOSIN\DOXAZOSIN MESYLATE
     Route: 048
     Dates: start: 2014
  22. FUROSEMIDE. [Concomitant]
     Active Substance: FUROSEMIDE
     Indication: OEDEMA PERIPHERAL
     Dosage: UNK
     Route: 048
     Dates: start: 20150319
  23. RITUXIMAB [Suspect]
     Active Substance: RITUXIMAB
     Dosage: 787 MG, Q1WK
     Route: 042
     Dates: start: 20150428, end: 20150428
  24. LOPERAMIDE [Suspect]
     Active Substance: LOPERAMIDE
     Indication: DIARRHOEA
     Route: 065
  25. DETRUSITOL [Concomitant]
     Active Substance: TOLTERODINE TARTRATE
     Indication: PROPHYLAXIS
     Route: 048
     Dates: start: 20150907, end: 2015
  26. BISOPROLOL [Concomitant]
     Active Substance: BISOPROLOL
     Dosage: UNK
     Route: 048
     Dates: start: 201111
  27. ENOXAPARIN [Concomitant]
     Active Substance: ENOXAPARIN
     Dosage: UNK
     Route: 058
     Dates: start: 20150529, end: 201511
  28. IDELALISIB [Suspect]
     Active Substance: IDELALISIB
     Dosage: 150 MG, BID
     Route: 048
     Dates: start: 20150617, end: 20150624
  29. RITUXIMAB [Suspect]
     Active Substance: RITUXIMAB
     Dosage: 787 MG, Q1WK
     Route: 042
     Dates: start: 20150407, end: 20150407
  30. BISOPROLOL [Concomitant]
     Active Substance: BISOPROLOL
     Indication: AORTIC VALVE REPLACEMENT
     Dosage: UNK
     Route: 048
  31. ENOXAPARIN [Concomitant]
     Active Substance: ENOXAPARIN
     Indication: AORTIC VALVE REPLACEMENT
     Dosage: UNK
     Route: 058
     Dates: start: 20150227
  32. DOXAZOSIN [Concomitant]
     Active Substance: DOXAZOSIN\DOXAZOSIN MESYLATE
     Indication: HYPERTENSION
     Dosage: UNK
     Route: 048

REACTIONS (6)
  - Septic shock [Recovered/Resolved]
  - Metabolic acidosis [Recovered/Resolved]
  - Intestinal sepsis [Recovered/Resolved]
  - Diarrhoea [Recovered/Resolved]
  - Diarrhoea [Recovered/Resolved]
  - Diarrhoea [Recovered/Resolved]

NARRATIVE: CASE EVENT DATE: 20150826
